FAERS Safety Report 9958796 (Version 2)
Quarter: 2014Q1

REPORT INFORMATION
  Report Type: Report from Study
  Country: US (occurrence: US)
  Receive Date: 20140305
  Receipt Date: 20140305
  Transmission Date: 20141002
  Serious: No
  Sender: FDA-Public Use
  Company Number: US-ABBVIE-13P-163-1074001-00

PATIENT
  Age: 48 Year
  Sex: Female

DRUGS (3)
  1. HUMIRA [Suspect]
     Indication: PSORIASIS
     Route: 058
     Dates: start: 20130306
  2. HUMIRA [Suspect]
     Route: 058
  3. HUMIRA [Suspect]
     Route: 058

REACTIONS (3)
  - Injection site pain [Unknown]
  - Cardiac flutter [Unknown]
  - Rash maculo-papular [Unknown]
